FAERS Safety Report 21178979 (Version 2)
Quarter: 2024Q2

REPORT INFORMATION
  Report Type: Report from Study
  Country: BE (occurrence: BE)
  Receive Date: 20220805
  Receipt Date: 20240423
  Transmission Date: 20240715
  Serious: No
  Sender: FDA-Public Use
  Company Number: BE-ABBVIE-22K-013-4374453-00

PATIENT
  Sex: Female

DRUGS (6)
  1. UPADACITINIB [Suspect]
     Active Substance: UPADACITINIB
     Indication: Axial spondyloarthritis
     Route: 048
     Dates: start: 20220208, end: 20220411
  2. UPADACITINIB [Suspect]
     Active Substance: UPADACITINIB
     Indication: Axial spondyloarthritis
     Route: 048
     Dates: start: 20220416
  3. ETHINYL ESTRADIOL\LEVONORGESTREL [Concomitant]
     Active Substance: ETHINYL ESTRADIOL\LEVONORGESTREL
     Indication: Contraception
     Route: 048
     Dates: start: 2010
  4. IBUPROFEN [Concomitant]
     Active Substance: IBUPROFEN
     Indication: Axial spondyloarthritis
     Dosage: AS NEEDED
     Route: 048
     Dates: start: 2021
  5. COMIRNATY (TOZINAMERAN) [Concomitant]
     Active Substance: TOZINAMERAN
     Indication: COVID-19 prophylaxis
     Dosage: 1 VIAL, ONCE
     Route: 030
     Dates: start: 20220312, end: 20220312
  6. CLINDAMYCIN [Concomitant]
     Active Substance: CLINDAMYCIN
     Indication: Dental implantation
     Dosage: TIME INTERVAL: 0.33333333 DAYS
     Route: 048
     Dates: start: 20220411, end: 20220415

REACTIONS (2)
  - Lipoma [Recovered/Resolved]
  - Pityriasis [Recovered/Resolved]

NARRATIVE: CASE EVENT DATE: 20220301
